FAERS Safety Report 17521855 (Version 1)
Quarter: 2020Q1

REPORT INFORMATION
  Report Type: Spontaneous
  Country: FR (occurrence: FR)
  Receive Date: 20200310
  Receipt Date: 20200310
  Transmission Date: 20200409
  Serious: Yes (Other)
  Sender: FDA-Public Use
  Company Number: FR-PFIZER INC-2020099064

PATIENT
  Age: 35 Year
  Sex: Female

DRUGS (1)
  1. RELPAX [Suspect]
     Active Substance: ELETRIPTAN HYDROBROMIDE
     Indication: MIGRAINE
     Dosage: 40 MG, SINGLE
     Route: 048
     Dates: start: 20200110, end: 20200110

REACTIONS (2)
  - Facial paralysis [Not Recovered/Not Resolved]
  - Tetany [Recovered/Resolved with Sequelae]

NARRATIVE: CASE EVENT DATE: 20200110
